FAERS Safety Report 19588935 (Version 3)
Quarter: 2021Q3

REPORT INFORMATION
  Report Type: Report from Study
  Country: US (occurrence: US)
  Receive Date: 20210721
  Receipt Date: 20210805
  Transmission Date: 20211014
  Serious: Yes (Other)
  Sender: FDA-Public Use
  Company Number: US-ROCHE-2866505

PATIENT
  Age: 58 Year
  Sex: Female

DRUGS (16)
  1. NORVASC [Concomitant]
     Active Substance: AMLODIPINE BESYLATE
  2. COBIMETINIB. [Suspect]
     Active Substance: COBIMETINIB
     Route: 048
     Dates: start: 20210720
  3. COVID?19 VACCINE [Concomitant]
  4. HYDROXYCHLOROQUINE [Suspect]
     Active Substance: HYDROXYCHLOROQUINE
     Indication: NEOPLASM MALIGNANT
     Dosage: ORALLY TWICE DAILY ON DAYS 1?28 OF EACH 28?DAY CYCLE
     Route: 048
     Dates: start: 20210615, end: 20210705
  5. CREON [Concomitant]
     Active Substance: PANCRELIPASE AMYLASE\PANCRELIPASE LIPASE\PANCRELIPASE PROTEASE
  6. COBIMETINIB. [Suspect]
     Active Substance: COBIMETINIB
     Indication: NEOPLASM MALIGNANT
     Dosage: ORALLY ONCE DAILY (MORNING) ON DAYS 1?21 OF EACH 28?DAY
     Route: 048
     Dates: start: 20210615, end: 20210705
  7. PREDNISONE. [Concomitant]
     Active Substance: PREDNISONE
  8. NORMAL SALINE [Concomitant]
     Active Substance: SODIUM CHLORIDE
  9. OXYCODONE [Concomitant]
     Active Substance: OXYCODONE
  10. DOXYCYCLINE. [Concomitant]
     Active Substance: DOXYCYCLINE
  11. CARAFATE [Concomitant]
     Active Substance: SUCRALFATE
  12. BETAMETHASONE DIPROPRIONATE [Concomitant]
     Active Substance: BETAMETHASONE DIPROPIONATE
  13. DIPHENHYDRAMINE. [Concomitant]
     Active Substance: DIPHENHYDRAMINE
  14. NYSTATIN. [Concomitant]
     Active Substance: NYSTATIN
  15. HYDROXYCHLOROQUINE [Suspect]
     Active Substance: HYDROXYCHLOROQUINE
     Dosage: C2D1
     Route: 048
     Dates: start: 20210720
  16. LOVENOX [Concomitant]
     Active Substance: ENOXAPARIN SODIUM

REACTIONS (2)
  - Dermatitis bullous [Recovered/Resolved]
  - Rash pustular [Recovered/Resolved]

NARRATIVE: CASE EVENT DATE: 20210706
